FAERS Safety Report 6718060-1 (Version None)
Quarter: 2010Q2

REPORT INFORMATION
  Report Type: 
  Country: None (occurrence: None)
  Receive Date: 20100510
  Receipt Date: 20100430
  Transmission Date: 20101027
  Serious: Yes (Death)
  Sender: FDA-Public Use
  Company Number: A0790042A

PATIENT
  Sex: Male

DRUGS (2)
  1. AVANDIA [Suspect]
     Indication: DIABETES MELLITUS
     Route: 048
  2. AVANDAMET [Suspect]
     Dosage: 2TAB PER DAY

REACTIONS (11)
  - ASTHENIA [None]
  - DEPRESSION [None]
  - DYSPNOEA [None]
  - HYPOGLYCAEMIC COMA [None]
  - INJURY [None]
  - MACULAR OEDEMA [None]
  - MALIGNANT HYPERTENSION [None]
  - PERIPHERAL VASCULAR DISORDER [None]
  - PULMONARY EMBOLISM [None]
  - SWELLING [None]
  - VISION BLURRED [None]
